FAERS Safety Report 18765074 (Version 1)
Quarter: 2021Q1

REPORT INFORMATION
  Report Type: Spontaneous
  Country: CN (occurrence: CN)
  Receive Date: 20210121
  Receipt Date: 20210121
  Transmission Date: 20210419
  Serious: Yes (Hospitalization)
  Sender: FDA-Public Use
  Company Number: CN-ROCHE-2753384

PATIENT
  Sex: Male

DRUGS (4)
  1. APATINIB MESYLATE [Concomitant]
     Active Substance: APATINIB
     Indication: HEPATOCELLULAR CARCINOMA
  2. TECENTRIQ [Suspect]
     Active Substance: ATEZOLIZUMAB
     Indication: HEPATOCELLULAR CARCINOMA
     Route: 042
     Dates: start: 202012
  3. REGORAFENIB. [Concomitant]
     Active Substance: REGORAFENIB
     Indication: HEPATOCELLULAR CARCINOMA
  4. AVASTIN [Suspect]
     Active Substance: BEVACIZUMAB
     Indication: HEPATOCELLULAR CARCINOMA
     Route: 042
     Dates: start: 202012

REACTIONS (2)
  - Immune-mediated hepatitis [Unknown]
  - Hepatic encephalopathy [Unknown]
